FAERS Safety Report 20844844 (Version 1)
Quarter: 2022Q2

REPORT INFORMATION
  Report Type: Spontaneous
  Country: US (occurrence: None)
  Receive Date: 20220517
  Receipt Date: 20220517
  Transmission Date: 20220721
  Serious: No
  Sender: FDA-Public Use
  Company Number: None

PATIENT
  Age: 56 Year
  Sex: Female
  Weight: 49.5 kg

DRUGS (9)
  1. PAXLOVID [Suspect]
     Active Substance: NIRMATRELVIR\RITONAVIR
     Indication: COVID-19
     Dosage: OTHER QUANTITY : 3 TABLET(S);?FREQUENCY : EVERY 12 HOURS;?
     Route: 048
     Dates: start: 20220512, end: 20220517
  2. CEREFOLIN W NAC [Concomitant]
  3. VIVELLE DOT [Concomitant]
  4. PROGESTERONE [Concomitant]
     Active Substance: PROGESTERONE
  5. PROMETRIUM [Concomitant]
     Active Substance: PROGESTERONE
  6. NATTOKINASE MVI [Concomitant]
  7. HUMAVIR [Concomitant]
  8. ASPIRIN [Concomitant]
     Active Substance: ASPIRIN
  9. VIT D3 W K2 [Concomitant]

REACTIONS (5)
  - Hypoaesthesia oral [None]
  - Paraesthesia oral [None]
  - Muscle spasms [None]
  - Pain [None]
  - Dysgeusia [None]

NARRATIVE: CASE EVENT DATE: 20220512
